FAERS Safety Report 15346783 (Version 2)
Quarter: 2018Q3

REPORT INFORMATION
  Report Type: Spontaneous
  Country: US (occurrence: US)
  Receive Date: 20180904
  Receipt Date: 20180906
  Transmission Date: 20181010
  Serious: No
  Sender: FDA-Public Use
  Company Number: US-BIOGEN-2018BI00626573

PATIENT
  Sex: Female

DRUGS (1)
  1. AVONEX [Suspect]
     Active Substance: INTERFERON BETA-1A
     Indication: MULTIPLE SCLEROSIS
     Route: 065
     Dates: start: 20180713

REACTIONS (4)
  - Injection site bruising [Recovered/Resolved with Sequelae]
  - Stress [Unknown]
  - Myalgia [Unknown]
  - Injection site pain [Recovered/Resolved with Sequelae]
